FAERS Safety Report 6104308-3 (Version None)
Quarter: 2009Q1

REPORT INFORMATION
  Report Type: 
  Country: None (occurrence: None)
  Receive Date: 20090305
  Receipt Date: 20090223
  Transmission Date: 20090719
  Serious: Yes (Disabling)
  Sender: FDA-Public Use
  Company Number: US-ELI_LILLY_AND_COMPANY-US200902005992

PATIENT
  Sex: Female

DRUGS (1)
  1. FORTEO [Suspect]
     Indication: OSTEOPOROSIS
     Dates: start: 20080301, end: 20080701

REACTIONS (8)
  - ABDOMINAL DISTENSION [None]
  - ACTIVITIES OF DAILY LIVING IMPAIRED [None]
  - CONJUNCTIVITIS INFECTIVE [None]
  - CRYING [None]
  - MALAISE [None]
  - OEDEMA PERIPHERAL [None]
  - PAIN [None]
  - PHYSICAL DISABILITY [None]
